FAERS Safety Report 18231806 (Version 2)
Quarter: 2020Q4

REPORT INFORMATION
  Report Type: Report from Study
  Country: US (occurrence: US)
  Receive Date: 20200904
  Receipt Date: 20201029
  Transmission Date: 20210113
  Serious: Yes (Hospitalization)
  Sender: FDA-Public Use
  Company Number: US-EISAI MEDICAL RESEARCH-EC-2020-074796

PATIENT
  Age: 30 Year
  Sex: Female
  Weight: 113 kg

DRUGS (16)
  1. LENVIMA [Suspect]
     Active Substance: LENVATINIB
     Route: 048
     Dates: start: 2020, end: 2020
  2. LENVIMA [Suspect]
     Active Substance: LENVATINIB
     Route: 048
     Dates: start: 2020, end: 202010
  3. XARELTO [Concomitant]
     Active Substance: RIVAROXABAN
  4. ONDANSETRON [Concomitant]
     Active Substance: ONDANSETRON
  5. SUCRALFATE. [Concomitant]
     Active Substance: SUCRALFATE
  6. LENVIMA [Suspect]
     Active Substance: LENVATINIB
     Route: 048
     Dates: start: 2020, end: 202008
  7. DULOXETINE. [Concomitant]
     Active Substance: DULOXETINE
  8. PANTOPRAZOLE [Concomitant]
     Active Substance: PANTOPRAZOLE
  9. IBUPROFEN. [Concomitant]
     Active Substance: IBUPROFEN
  10. OXYCODONE [Concomitant]
     Active Substance: OXYCODONE
  11. LISINOPRIL. [Concomitant]
     Active Substance: LISINOPRIL
  12. CLONIDINE. [Concomitant]
     Active Substance: CLONIDINE
  13. LENVIMA [Suspect]
     Active Substance: LENVATINIB
     Indication: ENDOMETRIAL CANCER METASTATIC
     Route: 048
     Dates: start: 20200501, end: 202005
  14. LIDOCAINE. [Concomitant]
     Active Substance: LIDOCAINE
  15. KEYTRUDA [Concomitant]
     Active Substance: PEMBROLIZUMAB
     Route: 041
  16. PROCHLORPERAZINE. [Concomitant]
     Active Substance: PROCHLORPERAZINE

REACTIONS (4)
  - Arthralgia [Unknown]
  - Pancreatitis [Recovering/Resolving]
  - Migraine [Unknown]
  - Blood pressure increased [Unknown]

NARRATIVE: CASE EVENT DATE: 2020
